FAERS Safety Report 17243606 (Version 1)
Quarter: 2020Q1

REPORT INFORMATION
  Report Type: Report from Study
  Country: BE (occurrence: BE)
  Receive Date: 20200107
  Receipt Date: 20200107
  Transmission Date: 20200409
  Serious: Yes (Disabling)
  Sender: FDA-Public Use
  Company Number: BE-JNJFOC-20191244510

PATIENT
  Sex: Male

DRUGS (12)
  1. CRESTOR [Concomitant]
     Active Substance: ROSUVASTATIN CALCIUM
  2. APALUTAMIDE [Suspect]
     Active Substance: APALUTAMIDE
     Route: 048
     Dates: start: 20191028, end: 20191125
  3. DESLORATADINE. [Concomitant]
     Active Substance: DESLORATADINE
  4. QUININE [Concomitant]
     Active Substance: QUININE
  5. EZETROL [Concomitant]
     Active Substance: EZETIMIBE
  6. SERELYS [Concomitant]
  7. SELOZOK [Concomitant]
     Active Substance: METOPROLOL SUCCINATE
  8. BLOCOTIN                           /00442702/ [Concomitant]
  9. CARDIOASPIRINE [Concomitant]
     Active Substance: ASPIRIN
  10. APALUTAMIDE [Suspect]
     Active Substance: APALUTAMIDE
     Indication: HORMONE-REFRACTORY PROSTATE CANCER
     Route: 048
     Dates: start: 20190719, end: 20191002
  11. CLOZAN [Concomitant]
  12. TEMPOL C [Concomitant]

REACTIONS (2)
  - Alopecia [Recovering/Resolving]
  - Rash [Recovering/Resolving]

NARRATIVE: CASE EVENT DATE: 20191125
